FAERS Safety Report 13413486 (Version 3)
Quarter: 2024Q1

REPORT INFORMATION
  Report Type: Spontaneous
  Country: US (occurrence: US)
  Receive Date: 20170406
  Receipt Date: 20240207
  Transmission Date: 20240410
  Serious: No
  Sender: FDA-Public Use
  Company Number: US-JNJFOC-20170317331

PATIENT
  Sex: Male

DRUGS (14)
  1. RISPERDAL [Suspect]
     Active Substance: RISPERIDONE
     Indication: Bipolar disorder
     Dosage: ONCE DAILY
     Route: 048
     Dates: start: 20041102, end: 20041103
  2. RISPERDAL [Suspect]
     Active Substance: RISPERIDONE
     Indication: Affective disorder
     Route: 048
     Dates: start: 20041117
  3. RISPERDAL [Suspect]
     Active Substance: RISPERIDONE
     Indication: Paranoia
     Route: 048
     Dates: end: 20050301
  4. RISPERDAL [Suspect]
     Active Substance: RISPERIDONE
     Route: 048
     Dates: start: 20050401
  5. RISPERDAL [Suspect]
     Active Substance: RISPERIDONE
     Route: 048
     Dates: start: 20050406
  6. RISPERDAL [Suspect]
     Active Substance: RISPERIDONE
     Route: 048
     Dates: start: 20050824, end: 20051005
  7. RISPERDAL [Suspect]
     Active Substance: RISPERIDONE
     Route: 048
     Dates: end: 2012
  8. INVEGA [Suspect]
     Active Substance: PALIPERIDONE
     Indication: Bipolar disorder
     Route: 048
     Dates: start: 20080304
  9. INVEGA [Suspect]
     Active Substance: PALIPERIDONE
     Indication: Affective disorder
     Route: 048
     Dates: start: 20080307, end: 20080501
  10. INVEGA [Suspect]
     Active Substance: PALIPERIDONE
     Indication: Paranoia
  11. HALOPERIDOL [Suspect]
     Active Substance: HALOPERIDOL
     Indication: Product used for unknown indication
     Route: 065
     Dates: end: 2012
  12. SEROQUEL [Suspect]
     Active Substance: QUETIAPINE FUMARATE
     Indication: Product used for unknown indication
     Route: 065
     Dates: end: 2012
  13. DEPAKOTE [Suspect]
     Active Substance: DIVALPROEX SODIUM
     Indication: Product used for unknown indication
     Route: 065
     Dates: end: 2012
  14. ZOLOFT [Suspect]
     Active Substance: SERTRALINE HYDROCHLORIDE
     Indication: Product used for unknown indication
     Route: 065
     Dates: end: 2012

REACTIONS (3)
  - Emotional disorder [Unknown]
  - Condition aggravated [Unknown]
  - Gynaecomastia [Unknown]
